FAERS Safety Report 9639742 (Version 2)
Quarter: 2013Q4

REPORT INFORMATION
  Report Type: Spontaneous
  Country: JP (occurrence: JP)
  Receive Date: 20131023
  Receipt Date: 20131030
  Transmission Date: 20140711
  Serious: Yes (Other)
  Sender: FDA-Public Use
  Company Number: JP-AMGEN-JPNSP2013073738

PATIENT
  Age: 67 Year
  Sex: Male
  Weight: 47 kg

DRUGS (13)
  1. GRAN [Suspect]
     Indication: NEUTROPHIL COUNT DECREASED
     Dosage: 75 MUG, QD
     Route: 042
     Dates: start: 20130507, end: 20130511
  2. RITUXAN [Concomitant]
     Indication: LYMPHOMA
     Dosage: 540 MG, QD
     Route: 042
     Dates: start: 20130424, end: 20130424
  3. DOXORUBICIN HYDROCHLORIDE [Concomitant]
     Indication: LYMPHOMA
     Dosage: UNK
     Route: 042
     Dates: start: 20130403, end: 20130403
  4. DOXORUBICIN HYDROCHLORIDE [Concomitant]
     Dosage: 72 MG, QD
     Route: 042
     Dates: start: 20130425, end: 20130425
  5. ONCOVIN [Concomitant]
     Indication: LYMPHOMA
     Dosage: UNK
     Route: 042
     Dates: start: 20130403, end: 20130403
  6. ONCOVIN [Concomitant]
     Dosage: 2 MG, QD
     Route: 042
     Dates: start: 20130425, end: 20130425
  7. ENDOXAN                            /00021102/ [Concomitant]
     Indication: LYMPHOMA
     Dosage: UNK
     Route: 042
     Dates: start: 20130403, end: 20130403
  8. ENDOXAN                            /00021102/ [Concomitant]
     Dosage: 1080 MG, QD
     Route: 042
     Dates: start: 20130425, end: 20130425
  9. PREDONINE                          /00016204/ [Concomitant]
     Indication: LYMPHOMA
     Dosage: UNK
     Route: 042
     Dates: start: 20130403, end: 201304
  10. PREDONINE                          /00016204/ [Concomitant]
     Dosage: 100 MG, QD
     Route: 042
     Dates: start: 20130425, end: 20130429
  11. AMLODIN [Concomitant]
     Indication: HYPERTENSION
     Dosage: 2.5 MG, QD
     Route: 048
     Dates: start: 20130426
  12. FEBURIC [Concomitant]
     Indication: HYPERURICAEMIA
     Dosage: 20 MG, BID
     Route: 048
     Dates: start: 20130422
  13. BAKTAR [Concomitant]
     Indication: ANTIFUNGAL PROPHYLAXIS
     Dosage: UNK, QD
     Route: 048
     Dates: start: 20130426

REACTIONS (1)
  - Psoriasis [Recovering/Resolving]
